FAERS Safety Report 7352273-3 (Version None)
Quarter: 2011Q1

REPORT INFORMATION
  Report Type: 
  Country: None (occurrence: None)
  Receive Date: 20110315
  Receipt Date: 20110304
  Transmission Date: 20110831
  Serious: Yes (Hospitalization)
  Sender: FDA-Public Use
  Company Number: ES-ELI_LILLY_AND_COMPANY-ES201103001759

PATIENT
  Sex: Female
  Weight: 45.3 kg

DRUGS (8)
  1. NATECAL D [Concomitant]
     Indication: OSTEOPOROSIS
     Route: 048
  2. DIEMIL [Concomitant]
     Indication: NERVOUS SYSTEM DISORDER
     Route: 048
  3. DISTRANEURINE [Concomitant]
     Indication: PAIN
     Route: 048
  4. DEPRAX [Concomitant]
     Indication: DEPRESSION
     Route: 048
  5. ADIRO [Concomitant]
     Indication: CARDIOVASCULAR EVENT PROPHYLAXIS
     Route: 048
  6. TANAKENE [Concomitant]
     Indication: NERVOUS SYSTEM DISORDER
     Route: 048
  7. FORTEO [Suspect]
     Indication: OSTEOPOROSIS
     Dosage: 20 UG, DAILY (1/D)
     Route: 058
     Dates: start: 20100315, end: 20110201
  8. TERMALGIN [Concomitant]
     Indication: PAIN
     Route: 048

REACTIONS (2)
  - FALL [None]
  - FEMUR FRACTURE [None]
